FAERS Safety Report 4920229-3 (Version None)
Quarter: 2006Q1

REPORT INFORMATION
  Report Type: 
  Country: None (occurrence: None)
  Receive Date: 20060216
  Receipt Date: 20060206
  Transmission Date: 20060701
  Serious: Yes (Death, Other)
  Sender: FDA-Public Use
  Company Number: 2005JP002251

PATIENT
  Age: 72 Year
  Sex: Female

DRUGS (3)
  1. FUNGUARD (MICAFUNGIN) INJECTION [Suspect]
     Indication: PNEUMONIA ASPERGILLUS
     Dosage: IV DRIP
     Route: 041
  2. STEROID [Concomitant]
  3. SIVELESTAT (SIVELESTAT) [Concomitant]

REACTIONS (7)
  - ACUTE RESPIRATORY DISTRESS SYNDROME [None]
  - DISSEMINATED INTRAVASCULAR COAGULATION [None]
  - ENTEROCOCCAL BACTERAEMIA [None]
  - LUNG INFECTION PSEUDOMONAL [None]
  - MULTI-ORGAN FAILURE [None]
  - RESPIRATORY FAILURE [None]
  - WHITE BLOOD CELL COUNT DECREASED [None]
